FAERS Safety Report 5314680-X (Version None)
Quarter: 2007Q2

REPORT INFORMATION
  Report Type: 
  Country: None (occurrence: None)
  Receive Date: 20070502
  Receipt Date: 20070423
  Transmission Date: 20071010
  Serious: Yes (Other)
  Sender: FDA-Public Use
  Company Number: YU-AVENTIS-200713703GDDC

PATIENT
  Sex: Female

DRUGS (4)
  1. TAXOTERE [Suspect]
     Indication: BREAST CANCER
     Route: 042
     Dates: start: 20070420, end: 20070420
  2. TRAMADOL HCL [Concomitant]
     Indication: PAIN
     Route: 030
  3. GLIBENCLAMIDE [Concomitant]
     Indication: DIABETES MELLITUS
     Route: 048
  4. ONDANSETRON [Concomitant]
     Route: 042

REACTIONS (5)
  - CYANOSIS [None]
  - DYSPNOEA [None]
  - HALLUCINATION, VISUAL [None]
  - MUSCLE SPASMS [None]
  - PAIN [None]
